FAERS Safety Report 19955683 (Version 1)
Quarter: 2021Q4

REPORT INFORMATION
  Report Type: Spontaneous
  Country: EG (occurrence: EG)
  Receive Date: 20211014
  Receipt Date: 20211014
  Transmission Date: 20220303
  Serious: Yes (Life-Threatening)
  Sender: FDA-Public Use
  Company Number: EG-NOVARTISPH-NVSC2021EG232896

PATIENT
  Age: 42 Year
  Sex: Female
  Weight: 60 kg

DRUGS (4)
  1. CATAFLAM [Suspect]
     Active Substance: DICLOFENAC POTASSIUM
     Indication: Headache
     Dosage: UNK
     Route: 065
     Dates: start: 20210802
  2. CATAFLAM [Suspect]
     Active Substance: DICLOFENAC POTASSIUM
     Indication: Analgesic therapy
     Dosage: 50 MG
     Route: 048
     Dates: start: 20210827
  3. AUGMENTIN [Concomitant]
     Active Substance: AMOXICILLIN\CLAVULANATE POTASSIUM
     Indication: Wound infection
     Dosage: 1 G, Q12H
     Route: 065
     Dates: start: 20210824, end: 20210826
  4. FLAGYL [Concomitant]
     Active Substance: METRONIDAZOLE\METRONIDAZOLE HYDROCHLORIDE
     Indication: Wound infection
     Dosage: 500 MG, TID
     Route: 048
     Dates: start: 20210824, end: 20210826

REACTIONS (7)
  - Anaphylactic shock [Unknown]
  - Loss of consciousness [Unknown]
  - Hypotension [Unknown]
  - Vomiting [Unknown]
  - Hypoglycaemia [Unknown]
  - Hyperhidrosis [Unknown]
  - Dizziness [Unknown]

NARRATIVE: CASE EVENT DATE: 20210827
